FAERS Safety Report 19932132 (Version 1)
Quarter: 2021Q4

REPORT INFORMATION
  Report Type: Spontaneous
  Country: CN (occurrence: CN)
  Receive Date: 20211008
  Receipt Date: 20211008
  Transmission Date: 20220304
  Serious: Yes (Congenital Anomaly)
  Sender: FDA-Public Use
  Company Number: CN-NOVOPROD-854655

PATIENT
  Sex: Male
  Weight: 3 kg

DRUGS (3)
  1. INSULIN DETEMIR [Suspect]
     Active Substance: INSULIN DETEMIR
     Indication: Gestational diabetes
     Dosage: 6 IU, QD (BEFORE SLEEP)
     Route: 064
     Dates: start: 20210510, end: 20210606
  2. NOVORAPID [Suspect]
     Active Substance: INSULIN ASPART
     Indication: Gestational diabetes
     Dosage: 6 IU, QD (2 U MORNING, 2 U NOON AND 2 U NIGHT)
     Route: 064
     Dates: start: 20210513, end: 20210606
  3. INSULIN ASPART [Suspect]
     Active Substance: INSULIN ASPART
     Indication: Gestational diabetes
     Dosage: 6 IU, QD BEFORE MEAL
     Route: 064
     Dates: start: 202106

REACTIONS (4)
  - Hand deformity [Unknown]
  - Syndactyly [Unknown]
  - Ectrodactyly [Unknown]
  - Foetal exposure during pregnancy [Recovered/Resolved]

NARRATIVE: CASE EVENT DATE: 20210510
